FAERS Safety Report 6313784-2 (Version None)
Quarter: 2009Q3

REPORT INFORMATION
  Report Type: 
  Country: None (occurrence: None)
  Receive Date: 20090818
  Receipt Date: 20090217
  Transmission Date: 20100115
  Serious: Yes (Hospitalization)
  Sender: FDA-Public Use
  Company Number: US-BRISTOL-MYERS SQUIBB COMPANY-14484570

PATIENT
  Age: 51 Year
  Sex: Male

DRUGS (6)
  1. REYATAZ [Suspect]
     Indication: ACQUIRED IMMUNODEFICIENCY SYNDROME
     Dosage: 5 YRS
     Route: 048
     Dates: start: 20030901
  2. RANITIDINE [Concomitant]
     Dates: start: 20030101
  3. NORVIR [Concomitant]
     Dates: start: 20030101
  4. EPZICOM [Concomitant]
     Dates: start: 20030101
  5. SUSTIVA [Concomitant]
     Dates: start: 20030101
  6. FISH OIL [Concomitant]
     Dates: start: 20030101

REACTIONS (1)
  - NEPHROLITHIASIS [None]
